FAERS Safety Report 7549919-3 (Version None)
Quarter: 2011Q2

REPORT INFORMATION
  Report Type: 
  Country: None (occurrence: None)
  Receive Date: 20110615
  Receipt Date: 20110606
  Transmission Date: 20111010
  Serious: Yes (Other)
  Sender: FDA-Public Use
  Company Number: PHHY2011FR33841

PATIENT
  Sex: Female
  Weight: 60 kg

DRUGS (5)
  1. TOXIN [Concomitant]
     Indication: MUSCLE SPASTICITY
     Dates: start: 20090101
  2. LAMOTRIGINE [Suspect]
     Indication: EPILEPSY
     Dosage: 100 MG TWICE A DAY AND 25 MG TWICE A DAY
     Route: 048
  3. PILOCARPINE [Concomitant]
  4. LAMICTAL [Suspect]
     Indication: EPILEPSY
  5. LIORESAL [Concomitant]
     Dosage: 4 DF/DAY
     Dates: start: 20050101

REACTIONS (4)
  - OEDEMA MOUTH [None]
  - EYELID IRRITATION [None]
  - DRY EYE [None]
  - SWELLING FACE [None]
